FAERS Safety Report 23506927 (Version 1)
Quarter: 2024Q1

REPORT INFORMATION
  Report Type: Spontaneous
  Country: US (occurrence: US)
  Receive Date: 20240209
  Receipt Date: 20240209
  Transmission Date: 20240410
  Serious: Yes (Hospitalization)
  Sender: FDA-Public Use
  Company Number: US-MYLANLABS-2024M1012744

PATIENT
  Age: 31 Year
  Sex: Female

DRUGS (4)
  1. VANCOMYCIN [Suspect]
     Active Substance: VANCOMYCIN
     Indication: Clostridium difficile infection
     Dosage: UNK; TAPERED AND PULSED TREATMENT
     Route: 048
  2. VANCOMYCIN [Suspect]
     Active Substance: VANCOMYCIN
     Indication: Zoonotic bacterial infection
  3. FIDAXOMICIN [Suspect]
     Active Substance: FIDAXOMICIN
     Indication: Clostridium difficile infection
     Dosage: UNK
     Route: 065
  4. FIDAXOMICIN [Suspect]
     Active Substance: FIDAXOMICIN
     Indication: Zoonotic bacterial infection

REACTIONS (1)
  - Drug ineffective [Unknown]
